FAERS Safety Report 9129609 (Version 1)
Quarter: 2013Q1

REPORT INFORMATION
  Report Type: Spontaneous
  Country: US (occurrence: US)
  Receive Date: 20130228
  Receipt Date: 20130228
  Transmission Date: 20140127
  Serious: No
  Sender: FDA-Public Use
  Company Number: US-BAYER-2013-025713

PATIENT
  Age: 49 Year
  Sex: Female

DRUGS (1)
  1. GADAVIST [Suspect]
     Indication: NUCLEAR MAGNETIC RESONANCE IMAGING
     Dosage: 8 CC^S ADMINISTERED IV, RIGHT ANTICUBITAL
     Route: 042
     Dates: start: 20130222

REACTIONS (3)
  - Feeling hot [None]
  - Pruritus [Not Recovered/Not Resolved]
  - Urticaria [None]
